FAERS Safety Report 7898018-X (Version None)
Quarter: 2011Q4

REPORT INFORMATION
  Report Type: 
  Country: None (occurrence: None)
  Receive Date: 20111107
  Receipt Date: 20111107
  Transmission Date: 20120403
  Serious: Yes (Hospitalization, Other)
  Sender: FDA-Public Use
  Company Number: None

PATIENT
  Sex: Male
  Weight: 86.182 kg

DRUGS (1)
  1. SIMVASTATIN [Suspect]
     Indication: BLOOD CHOLESTEROL
     Dosage: TAKE 1 TABLET
     Route: 048
     Dates: start: 20080501, end: 20110523

REACTIONS (6)
  - MYALGIA [None]
  - BACK PAIN [None]
  - MOVEMENT DISORDER [None]
  - PYREXIA [None]
  - MUSCLE DISORDER [None]
  - SPINAL DISORDER [None]
